FAERS Safety Report 23478854 (Version 1)
Quarter: 2024Q1

REPORT INFORMATION
  Report Type: Report from Study
  Country: US (occurrence: US)
  Receive Date: 20240205
  Receipt Date: 20240205
  Transmission Date: 20240410
  Serious: No
  Sender: FDA-Public Use
  Company Number: US-EXELIXIS-CABO-23068871

PATIENT
  Age: 71 Year
  Sex: Female

DRUGS (2)
  1. CABOMETYX [Suspect]
     Active Substance: CABOZANTINIB S-MALATE
     Indication: Thyroid cancer
     Dosage: 60 MG, QD
     Route: 048
  2. CABOMETYX [Suspect]
     Active Substance: CABOZANTINIB S-MALATE
     Dosage: 60 MG, QOD
     Route: 048

REACTIONS (17)
  - Blood pressure increased [Unknown]
  - Blood calcium decreased [Unknown]
  - Abdominal pain upper [Unknown]
  - Constipation [Recovered/Resolved]
  - Headache [Not Recovered/Not Resolved]
  - Stomatitis [Unknown]
  - Fatigue [Unknown]
  - Pain in extremity [Unknown]
  - Decreased appetite [Unknown]
  - Eye swelling [Not Recovered/Not Resolved]
  - Hunger [Unknown]
  - Peripheral swelling [Unknown]
  - Blood sodium decreased [Unknown]
  - Back pain [Unknown]
  - Cough [Unknown]
  - Inappropriate schedule of product administration [Unknown]
  - Product prescribing issue [Unknown]

NARRATIVE: CASE EVENT DATE: 20231013
